FAERS Safety Report 4748281-9 (Version None)
Quarter: 2005Q3

REPORT INFORMATION
  Report Type: 
  Country: None (occurrence: None)
  Receive Date: 20050815
  Receipt Date: 20050620
  Transmission Date: 20060218
  Serious: No
  Sender: FDA-Public Use
  Company Number: USA0506100904

PATIENT
  Age: 54 Year
  Sex: Male

DRUGS (5)
  1. CIALIS [Suspect]
     Dosage: 20 MG
  2. METOPROLOL [Concomitant]
  3. FOSINOPRIL SODIUM [Concomitant]
  4. METFORMIN HCL [Concomitant]
  5. PLAVIX [Concomitant]

REACTIONS (1)
  - DRUG INEFFECTIVE [None]
